FAERS Safety Report 10461419 (Version 1)
Quarter: 2014Q3

REPORT INFORMATION
  Report Type: Spontaneous
  Country: ZA (occurrence: None)
  Receive Date: 20140903
  Receipt Date: 20140903
  Transmission Date: 20150326
  Serious: Yes (Other)
  Sender: FDA-Public Use
  Company Number: GAM-289-14-ZA

PATIENT
  Age: 62 Year
  Sex: Male

DRUGS (2)
  1. ACETYLSALICYLIC ACID [Concomitant]
     Active Substance: ASPIRIN
  2. OCTAGAM IMMUNE GLOBULIN (HUMAN) [Suspect]
     Active Substance: HUMAN IMMUNOGLOBULIN G
     Indication: CHRONIC INFLAMMATORY DEMYELINATING POLYRADICULONEUROPATHY
     Dosage: 1X  1/MONTH
     Dates: start: 201403, end: 20140608

REACTIONS (4)
  - Drug ineffective [None]
  - Disease progression [None]
  - Chronic inflammatory demyelinating polyradiculoneuropathy [None]
  - Thrombophlebitis [None]

NARRATIVE: CASE EVENT DATE: 201408
